FAERS Safety Report 9657613 (Version 2)
Quarter: 2013Q4

REPORT INFORMATION
  Report Type: Spontaneous
  Country: US (occurrence: US)
  Receive Date: 20131030
  Receipt Date: 20131030
  Transmission Date: 20140711
  Serious: Yes (Other)
  Sender: FDA-Public Use
  Company Number: US-NAPPMUNDI-USA-2008-0036235

PATIENT
  Age: 41 Year
  Sex: Male
  Weight: 115.65 kg

DRUGS (7)
  1. OXYCONTIN TABLETS [Suspect]
     Indication: BACK PAIN
     Dosage: 80 MG, SEE TEXT
     Route: 048
     Dates: start: 200604, end: 20070222
  2. MORPHINE SULFATE (SIMILAR TO NDA 19-516) [Suspect]
     Indication: DRUG ABUSE
     Dosage: UNK UNK, SEE TEXT
     Dates: end: 20070227
  3. BENZODIAZEPINE DERIVATIVES [Suspect]
     Indication: DRUG ABUSE
  4. MARIJUANA [Suspect]
     Indication: DRUG ABUSE
     Dosage: UNK
     Dates: end: 20070222
  5. AVINZA [Suspect]
     Dosage: 120 MG, UNK
     Route: 048
     Dates: end: 20070227
  6. VALIUM /00017001/ [Suspect]
     Indication: PRODUCT USED FOR UNKNOWN INDICATION
     Dosage: 20 MG, DAILY
     Route: 048
     Dates: end: 20070226
  7. CATAPRES                           /00171101/ [Concomitant]
     Indication: BLOOD PRESSURE ABNORMAL
     Dosage: UNK
     Dates: end: 20070225

REACTIONS (4)
  - Drug dependence [Unknown]
  - Substance abuse [Unknown]
  - Drug withdrawal syndrome [Unknown]
  - Injury [Unknown]
